FAERS Safety Report 18207107 (Version 3)
Quarter: 2021Q2

REPORT INFORMATION
  Report Type: Spontaneous
  Country: CA (occurrence: CA)
  Receive Date: 20200828
  Receipt Date: 20210607
  Transmission Date: 20210717
  Serious: Yes (Other)
  Sender: FDA-Public Use
  Company Number: CA-JNJFOC-20200834249

PATIENT
  Age: 51 Year
  Sex: Female

DRUGS (6)
  1. HUMIRA [Suspect]
     Active Substance: ADALIMUMAB
     Indication: COLITIS
     Route: 058
  2. METHOTREXATE. [Suspect]
     Active Substance: METHOTREXATE
     Indication: COLITIS
     Route: 065
  3. REMICADE [Suspect]
     Active Substance: INFLIXIMAB
     Indication: COLITIS
     Route: 042
  4. ENTYVIO [Suspect]
     Active Substance: VEDOLIZUMAB
     Indication: COLITIS
     Dosage: POWDER FOR SOLUTION
     Route: 042
  5. VEDOLIZUMAB [Suspect]
     Active Substance: VEDOLIZUMAB
     Indication: COLITIS
     Route: 065
  6. SIMPONI [Suspect]
     Active Substance: GOLIMUMAB
     Indication: COLITIS
     Route: 058

REACTIONS (4)
  - Proctitis [Unknown]
  - Adverse drug reaction [Unknown]
  - Drug ineffective [Unknown]
  - Colitis [Unknown]
